FAERS Safety Report 6479821-X (Version None)
Quarter: 2009Q4

REPORT INFORMATION
  Report Type: 
  Country: None (occurrence: None)
  Receive Date: 20091208
  Receipt Date: 20091130
  Transmission Date: 20100525
  Serious: Yes (Hospitalization)
  Sender: FDA-Public Use
  Company Number: US-ROCHE-656561

PATIENT
  Sex: Female

DRUGS (7)
  1. CAPECITABINE [Suspect]
     Indication: BREAST CANCER METASTATIC
     Route: 048
     Dates: start: 20090827, end: 20090902
  2. DOCETAXEL [Suspect]
     Indication: BREAST CANCER METASTATIC
     Route: 042
     Dates: start: 20090827
  3. DIOVAN [Concomitant]
     Dates: start: 20040101
  4. METFORMIN HCL [Concomitant]
     Dates: start: 20050101
  5. SYNTHROID [Concomitant]
     Dates: start: 20040101
  6. LYRICA [Concomitant]
     Dates: start: 20070101
  7. DEXAMETHASONE [Concomitant]
     Dates: start: 20090826, end: 20090828

REACTIONS (3)
  - HYPOTENSION [None]
  - PNEUMOTHORAX [None]
  - PULMONARY EMBOLISM [None]
